FAERS Safety Report 8395631-0 (Version None)
Quarter: 2012Q2

REPORT INFORMATION
  Report Type: 
  Country: None (occurrence: None)
  Receive Date: 20120530
  Receipt Date: 20111216
  Transmission Date: 20120825
  Serious: No
  Sender: FDA-Public Use
  Company Number: US-GLAXOSMITHKLINE-A0958388A

PATIENT
  Sex: Male

DRUGS (1)
  1. VENTOLIN [Suspect]

REACTIONS (2)
  - PALPITATIONS [None]
  - ADVERSE DRUG REACTION [None]
